FAERS Safety Report 20140741 (Version 1)
Quarter: 2021Q4

REPORT INFORMATION
  Report Type: Spontaneous
  Country: BR (occurrence: BR)
  Receive Date: 20211202
  Receipt Date: 20211202
  Transmission Date: 20220303
  Serious: Yes (Disabling, Other)
  Sender: FDA-Public Use
  Company Number: BR-NOVARTISPH-NVSC2020BR208616

PATIENT
  Age: 92 Year
  Sex: Male

DRUGS (1)
  1. TIMOLOL MALEATE\TRAVOPROST [Suspect]
     Active Substance: TIMOLOL MALEATE\TRAVOPROST
     Indication: Glaucoma
     Dosage: UNK (START DATE: 4 YEARS AGO)
     Route: 065

REACTIONS (4)
  - Blindness [Not Recovered/Not Resolved]
  - Visual impairment [Unknown]
  - Glaucoma [Unknown]
  - Product administration error [Unknown]

NARRATIVE: CASE EVENT DATE: 20180901
